FAERS Safety Report 5279233-0 (Version None)
Quarter: 2007Q1

REPORT INFORMATION
  Report Type: 
  Country: None (occurrence: None)
  Receive Date: 20061213
  Receipt Date: 20051205
  Transmission Date: 20070707
  Serious: No
  Sender: FDA-Public Use
  Company Number: 2005UW18353

PATIENT
  Age: 55 Year
  Sex: Male

DRUGS (2)
  1. SEROQUEL [Suspect]
     Indication: SCHIZOPHRENIA
     Dosage: 600 MG DAILY PO
     Route: 048
  2. GEODON [Concomitant]

REACTIONS (1)
  - DIABETES MELLITUS [None]
